FAERS Safety Report 11258880 (Version 1)
Quarter: 2015Q3

REPORT INFORMATION
  Report Type: Spontaneous
  Country: US (occurrence: US)
  Receive Date: 20150710
  Receipt Date: 20150710
  Transmission Date: 20151125
  Serious: No
  Sender: FDA-Public Use
  Company Number: US-PURDUE-USA-2014-0117369

PATIENT
  Age: 53 Year
  Sex: Male

DRUGS (2)
  1. BUTRANS [Suspect]
     Active Substance: BUPRENORPHINE
     Dosage: 20 UNK, UNK
     Route: 062
     Dates: start: 20141030
  2. BUTRANS [Suspect]
     Active Substance: BUPRENORPHINE
     Indication: BACK PAIN
     Dosage: 20 MCG/HR, WEEKLY
     Route: 062
     Dates: start: 20140117, end: 20140822

REACTIONS (3)
  - Skin irritation [Unknown]
  - Psoriasis [Not Recovered/Not Resolved]
  - Application site irritation [Unknown]
